FAERS Safety Report 5263749-7 (Version None)
Quarter: 2007Q1

REPORT INFORMATION
  Report Type: 
  Country: None (occurrence: None)
  Receive Date: 20070313
  Receipt Date: 20070228
  Transmission Date: 20070707
  Serious: Yes (Hospitalization, Other)
  Sender: FDA-Public Use
  Company Number: PHEH2007US02404

PATIENT
  Age: 54 Year
  Sex: Female
  Weight: 45 kg

DRUGS (7)
  1. CALCIUM CHANNEL BLOCKERS [Suspect]
     Indication: HYPERTENSION
     Dosage: 4 UNK, UNK
     Route: 042
     Dates: start: 20070126, end: 20070127
  2. LOPRESSOR [Suspect]
     Indication: HYPERTENSION
     Dosage: 10 MG, BID
     Route: 048
  3. LOPRESSOR [Suspect]
     Dosage: 50 MG, BID
     Route: 048
  4. LOPRESSOR [Suspect]
     Dosage: 25 MG, BID
     Route: 048
  5. PROCARDIA [Suspect]
     Indication: HYPERTENSION
     Dosage: 50 MG, TID
     Route: 048
     Dates: start: 20070127
  6. LIPITOR [Concomitant]
  7. PROTONIX [Concomitant]

REACTIONS (8)
  - APNOEA [None]
  - CHEST EXPANSION DECREASED [None]
  - HYPERHIDROSIS [None]
  - HYPERTENSION [None]
  - SYNCOPE VASOVAGAL [None]
  - TREMOR [None]
  - TROPONIN I INCREASED [None]
  - UNRESPONSIVE TO STIMULI [None]
